FAERS Safety Report 4960527-0 (Version None)
Quarter: 2006Q1

REPORT INFORMATION
  Report Type: 
  Country: None (occurrence: None)
  Receive Date: 20060329
  Receipt Date: 20060316
  Transmission Date: 20060701
  Serious: Yes (Death, Other)
  Sender: FDA-Public Use
  Company Number: 2006AL000742

PATIENT
  Age: 22 Year
  Sex: Female

DRUGS (1)
  1. CITALOPRAM HYDROBROMIIDE [Suspect]
     Indication: DEPRESSION
     Dosage: 2880 MG; X1; PO
     Route: 048

REACTIONS (1)
  - OVERDOSE [None]
